FAERS Safety Report 6230802-0 (Version None)
Quarter: 2009Q2

REPORT INFORMATION
  Report Type: 
  Country: None (occurrence: None)
  Receive Date: 20090616
  Receipt Date: 20090608
  Transmission Date: 20091009
  Serious: Yes (Other)
  Sender: FDA-Public Use
  Company Number: US-JNJFOC-20090603637

PATIENT
  Sex: Female
  Weight: 128.37 kg

DRUGS (6)
  1. DURAGESIC-100 [Suspect]
     Indication: FIBROMYALGIA
     Route: 062
  2. SOMA [Concomitant]
     Indication: PAIN
     Route: 048
  3. LISINOPRIL [Concomitant]
     Indication: BLOOD PRESSURE
  4. WELLBUTRIN [Concomitant]
     Indication: DEPRESSION
     Route: 048
  5. CYMBALTA [Concomitant]
     Indication: DEPRESSION
     Route: 048
  6. ADVAIR HFA [Concomitant]
     Indication: ASTHMA
     Route: 055

REACTIONS (5)
  - HYPOTHYROIDISM [None]
  - INADEQUATE ANALGESIA [None]
  - LIMB INJURY [None]
  - OEDEMA PERIPHERAL [None]
  - WITHDRAWAL SYNDROME [None]
